FAERS Safety Report 25635345 (Version 1)
Quarter: 2025Q3

REPORT INFORMATION
  Report Type: Spontaneous
  Country: US (occurrence: US)
  Receive Date: 20250802
  Receipt Date: 20250802
  Transmission Date: 20251020
  Serious: No
  Sender: AUROBINDO
  Company Number: US-AUROBINDO-AUR-APL-2025-033228

PATIENT
  Age: 72 Year
  Sex: Male
  Weight: 86.1 kg

DRUGS (2)
  1. TERBINAFINE HYDROCHLORIDE [Suspect]
     Active Substance: TERBINAFINE HYDROCHLORIDE
     Indication: Pruritus
     Route: 065
  2. TERBINAFINE HYDROCHLORIDE [Suspect]
     Active Substance: TERBINAFINE HYDROCHLORIDE
     Indication: Rash

REACTIONS (4)
  - Gastrointestinal pain [Unknown]
  - Hepatic pain [Unknown]
  - Drug ineffective [Unknown]
  - Product quality issue [Unknown]
